FAERS Safety Report 13986004 (Version 1)
Quarter: 2017Q3

REPORT INFORMATION
  Report Type: Spontaneous
  Country: US (occurrence: US)
  Receive Date: 20170919
  Receipt Date: 20170919
  Transmission Date: 20171128
  Serious: Yes (Death)
  Sender: FDA-Public Use
  Company Number: None

PATIENT
  Sex: Male

DRUGS (3)
  1. PROHANCE [Suspect]
     Active Substance: GADOTERIDOL
  2. MAGNEVIST [Suspect]
     Active Substance: GADOPENTETATE DIMEGLUMINE
  3. OMNISCAN [Suspect]
     Active Substance: GADODIAMIDE
     Route: 042

REACTIONS (5)
  - Nephrogenic systemic fibrosis [None]
  - Alopecia [None]
  - Scoliosis [None]
  - Pain in extremity [None]
  - Skin tightness [None]

NARRATIVE: CASE EVENT DATE: 20060501
